FAERS Safety Report 22047904 (Version 2)
Quarter: 2023Q1

REPORT INFORMATION
  Report Type: Other
  Country: US (occurrence: None)
  Receive Date: 20230301
  Receipt Date: 20230330
  Transmission Date: 20230418
  Serious: Yes (Other)
  Sender: FDA-Public Use
  Company Number: US-ROCHE-3292259

PATIENT
  Age: 79 Year
  Sex: Female

DRUGS (1)
  1. ESBRIET [Suspect]
     Active Substance: PIRFENIDONE
     Indication: Idiopathic pulmonary fibrosis
     Dosage: TAKE 2 CAPSULE(S) BY MOUTH 3 TIMES A DAY
     Route: 048

REACTIONS (2)
  - Cerebrovascular accident [Unknown]
  - Hemiplegia [Unknown]
